FAERS Safety Report 5794112-8 (Version None)
Quarter: 2008Q2

REPORT INFORMATION
  Report Type: 
  Country: None (occurrence: None)
  Receive Date: 20080627
  Receipt Date: 20080616
  Transmission Date: 20081010
  Serious: Yes (Hospitalization)
  Sender: FDA-Public Use
  Company Number: AT-PFIZER INC-2008047860

PATIENT
  Sex: Male
  Weight: 62 kg

DRUGS (15)
  1. ECALTA [Suspect]
     Indication: SYSTEMIC CANDIDA
     Dates: start: 20080501, end: 20080501
  2. CYCLOSPORINE [Concomitant]
  3. CORTISONE [Concomitant]
  4. LASIX [Concomitant]
  5. CUROCEF [Concomitant]
  6. MINPROG PAED. [Concomitant]
  7. APREDNISLON [Concomitant]
  8. NORVASC [Concomitant]
  9. CELLCEPT [Concomitant]
  10. PANTOLOC ^BYK^ [Concomitant]
  11. DIPIDOLOR [Concomitant]
  12. NOVALGIN [Concomitant]
  13. ZOVIRAX [Concomitant]
  14. REOMAX [Concomitant]
  15. CARVEDILOL [Concomitant]

REACTIONS (1)
  - CONFUSIONAL STATE [None]
